FAERS Safety Report 4604473-0 (Version None)
Quarter: 2005Q2

REPORT INFORMATION
  Report Type: 
  Country: None (occurrence: None)
  Receive Date: 20050223
  Receipt Date: 20050108
  Transmission Date: 20051028
  Serious: No
  Sender: FDA-Public Use
  Company Number: PHEH2005US00777

PATIENT

DRUGS (1)
  1. ZELNORM [Suspect]

REACTIONS (2)
  - WEIGHT DECREASED [None]
  - WEIGHT GAIN POOR [None]
